FAERS Safety Report 7042273-5 (Version None)
Quarter: 2010Q4

REPORT INFORMATION
  Report Type: 
  Country: None (occurrence: None)
  Receive Date: 20101008
  Receipt Date: 20101001
  Transmission Date: 20110411
  Serious: Yes (Other)
  Sender: FDA-Public Use
  Company Number: 685837

PATIENT
  Sex: Male

DRUGS (3)
  1. OXALIPLATIN [Suspect]
     Indication: COLORECTAL CANCER METASTATIC
     Dosage: 130 MG/M 2 MILLIGRAM(S) /SQ. METER,
  2. AVASTIN [Suspect]
     Indication: COLORECTAL CANCER METASTATIC
     Dosage: 7.5 MG/KG MILLIGRAM(S) /KILOGRAM, (3 WEEK ) INTRAVENOUS
     Route: 042
     Dates: start: 20100525, end: 20100525
  3. CAPECITABINE [Suspect]
     Indication: COLORECTAL CANCER METASTATIC
     Dosage: 1000 MG/M 2 MILLIGRAM(S) /SQ. METER, ( 1 DAY ) ORAL
     Route: 048

REACTIONS (3)
  - GASTROINTESTINAL PERFORATION [None]
  - GASTROINTESTINAL STOMA COMPLICATION [None]
  - TUMOUR PERFORATION [None]
